FAERS Safety Report 8234088-7 (Version None)
Quarter: 2012Q1

REPORT INFORMATION
  Report Type: 
  Country: None (occurrence: None)
  Receive Date: 20120326
  Receipt Date: 20120326
  Transmission Date: 20120608
  Serious: Yes (Hospitalization)
  Sender: FDA-Public Use
  Company Number: None

PATIENT
  Age: 87 Year
  Sex: Female
  Weight: 90.718 kg

DRUGS (1)
  1. IBUPROFEN (ADVIL) [Suspect]
     Dates: start: 20110101, end: 20120301

REACTIONS (1)
  - GASTRIC ULCER HAEMORRHAGE [None]
